FAERS Safety Report 22045427 (Version 1)
Quarter: 2023Q1

REPORT INFORMATION
  Report Type: Spontaneous
  Country: CN (occurrence: CN)
  Receive Date: 20230228
  Receipt Date: 20230228
  Transmission Date: 20230418
  Serious: Yes (Other)
  Sender: FDA-Public Use
  Company Number: CN-PFIZER INC-PV202300035473

PATIENT
  Age: 52 Year
  Sex: Female
  Weight: 59 kg

DRUGS (4)
  1. EPIRUBICIN HYDROCHLORIDE [Suspect]
     Active Substance: EPIRUBICIN HYDROCHLORIDE
     Indication: Chemotherapy
     Dosage: 130 MG, 1X/DAY
     Route: 041
     Dates: start: 20230201, end: 20230201
  2. CYCLOPHOSPHAMIDE [Suspect]
     Active Substance: CYCLOPHOSPHAMIDE
     Indication: Chemotherapy
     Dosage: 0.95 G, 1X/DAY
     Route: 041
     Dates: start: 20230201, end: 20230201
  3. PEGYLATED RECOMBINANT HUMAN GRANULOCYTE COLONY-STIMULATING FACTOR [Concomitant]
     Indication: Prophylaxis
     Dosage: 6 MG
     Route: 058
     Dates: start: 20230202, end: 20230202
  4. GLUCUROLACTONE [Concomitant]
     Active Substance: GLUCUROLACTONE
     Indication: Hepatobiliary disorder prophylaxis
     Dosage: 100 MG, 3X/DAY
     Route: 048

REACTIONS (2)
  - Hepatic enzyme increased [Unknown]
  - White blood cell count decreased [Unknown]

NARRATIVE: CASE EVENT DATE: 20230208
